FAERS Safety Report 4931635-5 (Version None)
Quarter: 2006Q1

REPORT INFORMATION
  Report Type: 
  Country: None (occurrence: None)
  Receive Date: 20060303
  Receipt Date: 20051102
  Transmission Date: 20060701
  Serious: Yes (Other)
  Sender: FDA-Public Use
  Company Number: US-BRISTOL-MYERS SQUIBB COMPANY-13164199

PATIENT
  Age: 7 Decade
  Sex: Male

DRUGS (5)
  1. ERBITUX [Suspect]
     Indication: COLORECTAL CANCER
     Dosage: THERAPY START DATE FEB-2005
     Route: 042
     Dates: start: 20050101, end: 20050101
  2. ALOXI [Concomitant]
     Indication: PREMEDICATION
     Dates: start: 20050101, end: 20050101
  3. DECADRON SRC [Concomitant]
     Indication: PREMEDICATION
     Dates: start: 20050101, end: 20050101
  4. BENADRYL [Concomitant]
     Indication: PREMEDICATION
     Dates: start: 20050101, end: 20050101
  5. ZANTAC [Concomitant]
     Indication: PREMEDICATION
     Dates: start: 20050101, end: 20050101

REACTIONS (1)
  - BLOOD MAGNESIUM DECREASED [None]
